FAERS Safety Report 5842256-4 (Version None)
Quarter: 2008Q3

REPORT INFORMATION
  Report Type: 
  Country: None (occurrence: None)
  Receive Date: 20080812
  Receipt Date: 20080731
  Transmission Date: 20090109
  Serious: Yes (Hospitalization)
  Sender: FDA-Public Use
  Company Number: IT-AMGEN-UK264340

PATIENT
  Sex: Female

DRUGS (10)
  1. PANITUMUMAB [Suspect]
     Indication: COLORECTAL CANCER
     Route: 042
     Dates: start: 20071009, end: 20080123
  2. OXALIPLATIN [Concomitant]
  3. FLUOROURACIL [Concomitant]
  4. LEUCOVORIN CALCIUM [Concomitant]
  5. DEXAMETHASONE [Concomitant]
  6. KYTRIL [Concomitant]
  7. CALCIUM CARBONATE/VITAMIN D3 [Concomitant]
  8. FERROGRAD [Concomitant]
  9. MAGNESIUM SULFATE [Concomitant]
  10. NEORECORMON [Concomitant]
     Route: 058

REACTIONS (1)
  - RENAL FAILURE [None]
